FAERS Safety Report 8540577 (Version 2)
Quarter: 2013Q2

REPORT INFORMATION
  Report Type: Spontaneous
  Country: US (occurrence: US)
  Receive Date: 20120502
  Receipt Date: 20130402
  Transmission Date: 20140414
  Serious: Yes (Hospitalization, Other)
  Sender: FDA-Public Use
  Company Number: US-BAYER-2012-041613

PATIENT
  Age: 19 Year
  Sex: Female
  Weight: 76.19 kg

DRUGS (11)
  1. YAZ [Suspect]
     Indication: CONTRACEPTION
     Dosage: UNK
     Dates: start: 200901, end: 200909
  2. YAZ [Suspect]
     Indication: ACNE
  3. IBUPROFEN [Concomitant]
     Dosage: 800 MG, TID
     Route: 048
     Dates: start: 20090506, end: 20090910
  4. CIPROFLOXACIN [Concomitant]
     Dosage: 500 MG, UNK
  5. CO-TRIMOXAZOLE [Concomitant]
     Indication: CYSTITIS
     Dosage: 800/160, 1 BID
     Route: 048
  6. ACETAMINOPHEN [Concomitant]
     Indication: PYREXIA
     Dosage: 325 MG, 2 [TO] 3 Q6H
     Route: 048
     Dates: start: 20090417, end: 20090910
  7. ONDANSETRON [Concomitant]
     Indication: NAUSEA
     Dosage: 8 MG, Q8H, PRN
     Route: 060
  8. PROMETHAZINE HYDROCHLORIDE [Concomitant]
     Dosage: 25 MG, STAT ( IMMEDIATELY)
     Route: 030
  9. ZOFRAN [Concomitant]
     Indication: NAUSEA
  10. PHENERGAN [Concomitant]
     Indication: NAUSEA
  11. SEPTRA DS [Concomitant]

REACTIONS (8)
  - Cholecystitis chronic [None]
  - Gallbladder disorder [None]
  - Weight decreased [None]
  - Vomiting [None]
  - Injury [None]
  - Pain [None]
  - Emotional distress [None]
  - General physical health deterioration [None]
